FAERS Safety Report 7815090-3 (Version None)
Quarter: 2011Q4

REPORT INFORMATION
  Report Type: 
  Country: None (occurrence: None)
  Receive Date: 20111014
  Receipt Date: 20111014
  Transmission Date: 20120403
  Serious: Yes (Other)
  Sender: FDA-Public Use
  Company Number: None

PATIENT
  Age: 70 Year
  Sex: Female
  Weight: 71.667 kg

DRUGS (2)
  1. LEVOFLOXACIN [Suspect]
     Indication: BORDETELLA TEST POSITIVE
     Dosage: 1 TABS
     Route: 048
     Dates: start: 20110803, end: 20110812
  2. LEVOFLOXACIN [Concomitant]
     Indication: BRONCHITIS
     Dosage: 3 TABS
     Route: 048
     Dates: start: 20110928, end: 20111001

REACTIONS (2)
  - ACTIVITIES OF DAILY LIVING IMPAIRED [None]
  - ARTHRALGIA [None]
